FAERS Safety Report 8452957-X (Version None)
Quarter: 2012Q2

REPORT INFORMATION
  Report Type: 
  Country: None (occurrence: None)
  Receive Date: 20120620
  Receipt Date: 20120501
  Transmission Date: 20120825
  Serious: No
  Sender: FDA-Public Use
  Company Number: US-VERTEX PHARMACEUTICALS INC.-AE-2012-006378

PATIENT
  Sex: Female
  Weight: 59.02 kg

DRUGS (6)
  1. PROZAC [Concomitant]
     Indication: DEPRESSION
     Route: 048
  2. HYZAAR [Concomitant]
     Indication: HYPERTENSION
     Route: 048
  3. INCIVEK [Suspect]
     Indication: HEPATITIS C
     Route: 048
     Dates: start: 20120430
  4. PEGASYS [Concomitant]
     Indication: HEPATITIS C
     Route: 058
     Dates: start: 20120430
  5. EVISTA [Concomitant]
     Indication: OSTEOPOROSIS
     Route: 048
  6. RIBAVIRIN [Concomitant]
     Indication: HEPATITIS C
     Route: 048
     Dates: start: 20120430

REACTIONS (1)
  - NAUSEA [None]
